FAERS Safety Report 6674682-8 (Version None)
Quarter: 2010Q2

REPORT INFORMATION
  Report Type: 
  Country: None (occurrence: None)
  Receive Date: 20100409
  Receipt Date: 20100325
  Transmission Date: 20101027
  Serious: Yes (Hospitalization)
  Sender: FDA-Public Use
  Company Number: US-ELI_LILLY_AND_COMPANY-US201004000305

PATIENT
  Sex: Male

DRUGS (20)
  1. FORTEO [Suspect]
     Indication: OSTEOPOROSIS
     Dosage: 20 UG, DAILY (1/D)
     Dates: start: 20090901
  2. HUMULIN N [Suspect]
     Dosage: 35 U, UNK
     Dates: start: 19980101, end: 20100314
  3. HUMULIN R [Suspect]
  4. PRILOSEC [Concomitant]
     Dosage: 20 MG, 2/D
  5. LACTULOSE [Concomitant]
     Dosage: 15 ML, AS NEEDED
  6. BACTRIM [Concomitant]
     Dosage: UNK, DAILY (1/D)
  7. LIPRAM [Concomitant]
     Dosage: UNK, UNK
  8. REGLAN [Concomitant]
     Dosage: 20 MG, 2/D
  9. LOPID [Concomitant]
     Dosage: 600 MG, DAILY (1/D)
  10. ACTIGALL [Concomitant]
     Dosage: 300 MG, 2/D
  11. ZETIA [Concomitant]
     Dosage: 10 MG, UNK
  12. CELEXA [Concomitant]
     Dosage: 40 MG, DAILY (1/D)
  13. MULTI-VITAMINS [Concomitant]
     Dosage: UNK, DAILY (1/D)
  14. LISINOPRIL [Concomitant]
     Dosage: 10 MG, DAILY (1/D)
  15. SYNTHROID [Concomitant]
     Dosage: 0.05 MG, DAILY (1/D)
  16. PRAVACHOL [Concomitant]
     Dosage: 10 MG, EACH EVENING
  17. CALCIUM WITH VITAMIN D [Concomitant]
     Dosage: UNK, 2/D
  18. DURAGESIC-100 [Concomitant]
  19. DEMEROL [Concomitant]
     Indication: PAIN
     Dosage: 50 MG, AS NEEDED
  20. PHENERGAN [Concomitant]
     Indication: NAUSEA
     Dosage: 25 MG, UNK

REACTIONS (2)
  - DEHYDRATION [None]
  - RENAL FAILURE [None]
